FAERS Safety Report 25346894 (Version 1)
Quarter: 2025Q2

REPORT INFORMATION
  Report Type: Spontaneous
  Country: US (occurrence: None)
  Receive Date: 20250521
  Receipt Date: 20250521
  Transmission Date: 20250717
  Serious: No
  Sender: FDA-CTU
  Company Number: None

PATIENT
  Age: 65 Year
  Sex: Male

DRUGS (1)
  1. HYDROXYZINE DIHYDROCHLORIDE [Suspect]
     Active Substance: HYDROXYZINE DIHYDROCHLORIDE

REACTIONS (4)
  - Intentional overdose [None]
  - Impulse-control disorder [None]
  - Frustration tolerance decreased [None]
  - Suicide attempt [None]

NARRATIVE: CASE EVENT DATE: 20241115
